FAERS Safety Report 16350350 (Version 2)
Quarter: 2019Q2

REPORT INFORMATION
  Report Type: Spontaneous
  Country: US (occurrence: US)
  Receive Date: 20190524
  Receipt Date: 20190628
  Transmission Date: 20190711
  Serious: Yes (Hospitalization, Other)
  Sender: FDA-Public Use
  Company Number: US-ABBVIE-19K-163-2794191-00

PATIENT
  Sex: Male

DRUGS (1)
  1. MAVYRET [Suspect]
     Active Substance: GLECAPREVIR\PIBRENTASVIR
     Indication: CHRONIC HEPATITIS C
     Dosage: WEEK 6 OF THERAPY
     Route: 048

REACTIONS (5)
  - Atrial septal defect [Unknown]
  - Transient ischaemic attack [Unknown]
  - Dysphemia [Unknown]
  - Lethargy [Unknown]
  - Fatigue [Unknown]
